FAERS Safety Report 13709341 (Version 1)
Quarter: 2017Q3

REPORT INFORMATION
  Report Type: Spontaneous
  Country: FR (occurrence: FR)
  Receive Date: 20170703
  Receipt Date: 20170703
  Transmission Date: 20171127
  Serious: Yes (Hospitalization)
  Sender: FDA-Public Use
  Company Number: FR-ROCHE-1956928

PATIENT
  Age: 80 Year
  Sex: Female

DRUGS (6)
  1. UROMITEXAN [Suspect]
     Active Substance: MESNA
     Indication: PRODUCT USE IN UNAPPROVED INDICATION
     Route: 041
     Dates: start: 20170609, end: 20170610
  2. PREDNISONE. [Concomitant]
     Active Substance: PREDNISONE
     Route: 041
     Dates: start: 20170609, end: 20170616
  3. LOVENOX [Concomitant]
     Active Substance: ENOXAPARIN SODIUM
  4. MABTHERA [Suspect]
     Active Substance: RITUXIMAB
     Indication: PRODUCT USE IN UNAPPROVED INDICATION
     Route: 041
     Dates: start: 20170609, end: 20170610
  5. ENDOXAN [Suspect]
     Active Substance: CYCLOPHOSPHAMIDE
     Indication: PRODUCT USE IN UNAPPROVED INDICATION
     Route: 041
     Dates: start: 20170609, end: 20170610
  6. VINCRISTINE HOSPIRA [Suspect]
     Active Substance: VINCRISTINE
     Indication: PRODUCT USE IN UNAPPROVED INDICATION
     Route: 041
     Dates: start: 20170609, end: 20170610

REACTIONS (1)
  - Sinus bradycardia [Recovered/Resolved]

NARRATIVE: CASE EVENT DATE: 20170611
